FAERS Safety Report 20199177 (Version 1)
Quarter: 2021Q4

REPORT INFORMATION
  Report Type: Spontaneous
  Country: AU (occurrence: AU)
  Receive Date: 20211217
  Receipt Date: 20211217
  Transmission Date: 20220303
  Serious: Yes (Hospitalization, Other)
  Sender: FDA-Public Use
  Company Number: AU-NOVARTISPH-NVSC2021AU284350

PATIENT
  Age: 65 Year
  Sex: Female

DRUGS (3)
  1. CEFTRIAXONE [Suspect]
     Active Substance: CEFTRIAXONE
     Indication: Product used for unknown indication
     Dosage: UNK
     Route: 065
  2. FLUOXETINE [Suspect]
     Active Substance: FLUOXETINE HYDROCHLORIDE
     Indication: Product used for unknown indication
     Dosage: UNK
     Route: 065
  3. HYDROCHLOROTHIAZIDE\VALSARTAN [Suspect]
     Active Substance: HYDROCHLOROTHIAZIDE\VALSARTAN
     Indication: Product used for unknown indication
     Dosage: UNK (VALSARTAN 80MG AND HYDROCHLOROTHIAZIDE 12.5MG)
     Route: 065

REACTIONS (18)
  - Serratia infection [Unknown]
  - Dyspnoea [Unknown]
  - Cardiomyopathy [Unknown]
  - Rheumatoid arthritis [Unknown]
  - Ascites [Unknown]
  - Chronic obstructive pulmonary disease [Unknown]
  - Confusional state [Unknown]
  - Ventricular hypertrophy [Unknown]
  - Chest pain [Unknown]
  - Oedema peripheral [Unknown]
  - Weight increased [Unknown]
  - Pericardial disease [Unknown]
  - Emphysema [Unknown]
  - Venous pressure jugular increased [Unknown]
  - Heart sounds abnormal [Unknown]
  - Crepitations [Unknown]
  - Exercise tolerance increased [Unknown]
  - Coma scale abnormal [Unknown]
